FAERS Safety Report 9334882 (Version 2)
Quarter: 2013Q3

REPORT INFORMATION
  Report Type: Report from Study
  Country: AU (occurrence: AU)
  Receive Date: 20130606
  Receipt Date: 20130725
  Transmission Date: 20140515
  Serious: Yes (Other)
  Sender: FDA-Public Use
  Company Number: AU-ASTRAZENECA-2013SE38616

PATIENT
  Age: 27543 Day
  Sex: Male

DRUGS (14)
  1. AZD6140 [Suspect]
     Indication: CORONARY ARTERY DISEASE
     Route: 048
     Dates: start: 20111214, end: 20120923
  2. AZD6140 [Suspect]
     Indication: CORONARY ARTERY DISEASE
     Route: 048
     Dates: start: 20121017, end: 20130319
  3. AZD6140 [Suspect]
     Indication: CORONARY ARTERY DISEASE
     Route: 048
     Dates: start: 20130416, end: 20130528
  4. MOVICOL [Concomitant]
     Indication: CONSTIPATION
     Route: 048
     Dates: start: 20121006
  5. FRUSEMIDE [Concomitant]
     Indication: PULMONARY CONGESTION
     Route: 048
  6. PANTOPRAZOLE [Concomitant]
     Indication: GASTROOESOPHAGEAL REFLUX DISEASE
     Route: 048
  7. PROGOUT [Concomitant]
     Indication: GOUT
     Route: 048
  8. TEMAZEPAM [Concomitant]
     Indication: INSOMNIA
     Route: 048
  9. MONODUR [Concomitant]
     Indication: MYOCARDIAL ISCHAEMIA
     Route: 048
  10. AMLODIPINE [Concomitant]
     Indication: HYPERTENSION
     Route: 048
  11. AMITRIPTYLINE [Concomitant]
     Indication: INSOMNIA
     Route: 048
     Dates: start: 20120801
  12. AMITRIPTYLINE [Concomitant]
     Indication: DEPRESSION
     Route: 048
     Dates: start: 20120801
  13. NEBIVOLOL [Concomitant]
     Indication: TACHYCARDIA
     Route: 048
     Dates: start: 20121004
  14. ASA [Concomitant]
     Route: 048

REACTIONS (1)
  - Sick sinus syndrome [Recovered/Resolved]
